FAERS Safety Report 4859970-X (Version None)
Quarter: 2005Q4

REPORT INFORMATION
  Report Type: 
  Country: None (occurrence: None)
  Receive Date: 20051219
  Receipt Date: 20050125
  Transmission Date: 20060501
  Serious: Yes (Hospitalization)
  Sender: FDA-Public Use
  Company Number: US-MERCK-0501USA04137

PATIENT
  Age: 56 Year
  Sex: Male
  Weight: 68 kg

DRUGS (1)
  1. VIOXX [Suspect]
     Indication: NERVE COMPRESSION
     Route: 048
     Dates: start: 20010117, end: 20010704

REACTIONS (2)
  - HERNIA [None]
  - MYOCARDIAL INFARCTION [None]
